FAERS Safety Report 19362309 (Version 1)
Quarter: 2021Q2

REPORT INFORMATION
  Report Type: Other
  Country: FR (occurrence: FR)
  Receive Date: 20210602
  Receipt Date: 20210602
  Transmission Date: 20210717
  Serious: Yes (Hospitalization)
  Sender: FDA-Public Use
  Company Number: FR-ASTELLAS-2021US019644

PATIENT
  Age: 60 Year
  Sex: Male
  Weight: 103 kg

DRUGS (10)
  1. VECTARION [Suspect]
     Active Substance: ALMITRINE
     Indication: MECHANICAL VENTILATION
     Dosage: UNK UNK, UNKNOWN FREQ. (LAST ADMINISTERED 26?APR?2021)
     Route: 065
     Dates: start: 20210425
  2. MEROPENEM ANHYDROUS [Suspect]
     Active Substance: MEROPENEM ANHYDROUS
     Indication: SEPSIS
     Dosage: UNK UNK, UNKNOWN FREQ. (LAST ADMINISTERED 02?MAY?2021)
     Route: 065
     Dates: start: 20210425
  3. FUROSEMIDE. [Concomitant]
     Active Substance: FUROSEMIDE
     Indication: PRODUCT USED FOR UNKNOWN INDICATION
     Dosage: UNK UNK, UNKNOWN FREQ.
     Route: 065
  4. INSULINE [Concomitant]
     Active Substance: INSULIN NOS
     Indication: PRODUCT USED FOR UNKNOWN INDICATION
     Dosage: UNK UNK, UNKNOWN FREQ.
     Route: 065
  5. CEFTAZIDIME. [Suspect]
     Active Substance: CEFTAZIDIME
     Indication: SEPSIS
     Dosage: UNK UNK, UNKNOWN FREQ. (LAST ADMINISTERED 24?APR?2021)
     Route: 065
     Dates: start: 20210413
  6. LINEZOLIDE [Suspect]
     Active Substance: LINEZOLID
     Indication: SEPSIS
     Dosage: UNK UNK, UNKNOWN FREQ. (LAST ADMINISTERED 24?APR?2021)
     Route: 065
     Dates: start: 20210407
  7. METHYLPREDNISOLONE. [Concomitant]
     Active Substance: METHYLPREDNISOLONE
     Indication: PRODUCT USED FOR UNKNOWN INDICATION
     Dosage: UNK UNK, UNKNOWN FREQ.
     Route: 065
  8. PANTOPRAZOLE [Concomitant]
     Active Substance: PANTOPRAZOLE
     Indication: PRODUCT USED FOR UNKNOWN INDICATION
     Dosage: UNK UNK, UNKNOWN FREQ.
     Route: 065
  9. AMPHOTERICIN B, LIPOSOME [Suspect]
     Active Substance: AMPHOTERICIN B
     Indication: FUNGAL INFECTION
     Dosage: UNK UNK, UNKNOWN FREQ.
     Route: 065
     Dates: start: 20210425
  10. DAPTOMYCINE [Suspect]
     Active Substance: DAPTOMYCIN
     Indication: SEPSIS
     Dosage: UNK UNK, UNKNOWN FREQ. (LAST ADMINISTERED 25?APR?2021)
     Route: 065
     Dates: start: 20210320

REACTIONS (1)
  - Lichenoid keratosis [Recovered/Resolved]

NARRATIVE: CASE EVENT DATE: 20210428
